FAERS Safety Report 19145669 (Version 1)
Quarter: 2021Q2

REPORT INFORMATION
  Report Type: Spontaneous
  Country: US (occurrence: US)
  Receive Date: 20210416
  Receipt Date: 20210416
  Transmission Date: 20210717
  Serious: Yes (Hospitalization)
  Sender: FDA-Public Use
  Company Number: US-MYLANLABS-2021M1022618

PATIENT
  Age: 19 Year
  Sex: Male

DRUGS (3)
  1. PREDNISONE. [Suspect]
     Active Substance: PREDNISONE
     Indication: LUPUS NEPHRITIS
     Dosage: 80 MILLIGRAM, QD
     Route: 048
  2. CYCLOPHOSPHAMIDE. [Suspect]
     Active Substance: CYCLOPHOSPHAMIDE
     Indication: LUPUS NEPHRITIS
     Dosage: 1.2 GRAM DOSE: 0.7G/M2
     Route: 042
  3. METHYLPREDNISOLONE. [Suspect]
     Active Substance: METHYLPREDNISOLONE
     Indication: LUPUS NEPHRITIS
     Dosage: 1 GRAM, QD ADMINISTERED AS A PULSE THERAPY FOR 3 DAYS
     Route: 042

REACTIONS (8)
  - Cytomegalovirus enteritis [Recovered/Resolved]
  - Protein-losing gastroenteropathy [Recovered/Resolved]
  - Psychotic disorder [Recovered/Resolved]
  - Subclavian vein thrombosis [Recovered/Resolved]
  - Acute kidney injury [Recovered/Resolved]
  - Malnutrition [Recovered/Resolved]
  - Malabsorption [Recovered/Resolved]
  - Fungal sepsis [Recovered/Resolved]
